FAERS Safety Report 12010575 (Version 1)
Quarter: 2016Q1

REPORT INFORMATION
  Report Type: Spontaneous
  Country: None (occurrence: None)
  Receive Date: 20160204
  Receipt Date: 20160204
  Transmission Date: 20160526
  Serious: No
  Sender: FDA-Public Use
  Company Number: None

PATIENT

DRUGS (1)
  1. METFORMIN [Suspect]
     Active Substance: METFORMIN HYDROCHLORIDE

REACTIONS (10)
  - Pain [None]
  - Thirst [None]
  - Nail operation [None]
  - Burning sensation [None]
  - Gait disturbance [None]
  - Tremor [None]
  - Blood glucose decreased [None]
  - Alopecia [None]
  - Dry skin [None]
  - Depression [None]
